FAERS Safety Report 7516987-4 (Version None)
Quarter: 2011Q2

REPORT INFORMATION
  Report Type: 
  Country: None (occurrence: None)
  Receive Date: 20110502
  Receipt Date: 20110304
  Transmission Date: 20111010
  Serious: Yes (Other)
  Sender: FDA-Public Use
  Company Number: AMAG201100063

PATIENT
  Age: 63 Year
  Sex: Male
  Weight: 90.2 kg

DRUGS (1)
  1. FERAHEME [Suspect]
     Indication: RENAL FAILURE CHRONIC
     Dosage: 510 MG, SINGLE, INTRAVENOUS
     Route: 042
     Dates: start: 20101102, end: 20101102

REACTIONS (9)
  - FEELING HOT [None]
  - HYPERSENSITIVITY [None]
  - DYSARTHRIA [None]
  - DROOLING [None]
  - NAUSEA [None]
  - COUGH [None]
  - HYPOTENSION [None]
  - SWOLLEN TONGUE [None]
  - COLD SWEAT [None]
